FAERS Safety Report 21434404 (Version 1)
Quarter: 2022Q4

REPORT INFORMATION
  Report Type: Spontaneous
  Country: SG (occurrence: SG)
  Receive Date: 20221010
  Receipt Date: 20221010
  Transmission Date: 20230112
  Serious: No
  Sender: FDA-Public Use
  Company Number: SG-ALKEM LABORATORIES LIMITED-SG-ALKEM-2022-09164

PATIENT
  Sex: Female
  Weight: 2.42 kg

DRUGS (2)
  1. IBUPROFEN [Suspect]
     Active Substance: IBUPROFEN
     Indication: Patent ductus arteriosus
     Dosage: (10MG/KG/DOSE ON DAY  1 FOLLOWED BY 5MG/KG/DOSE ON DAY 2-3)
     Route: 048
  2. IBUPROFEN [Suspect]
     Active Substance: IBUPROFEN
     Dosage: (10MG/KG/DOSE ON DAY 1 FOLLOWED BY 5MG/KG/DOSE ON DAY 2-3)
     Route: 042

REACTIONS (1)
  - Drug ineffective [Unknown]
